FAERS Safety Report 12794433 (Version 2)
Quarter: 2017Q2

REPORT INFORMATION
  Report Type: Spontaneous
  Country: US (occurrence: US)
  Receive Date: 20160929
  Receipt Date: 20170512
  Transmission Date: 20170830
  Serious: No
  Sender: FDA-Public Use
  Company Number: US-JNJFOC-20160907162

PATIENT
  Age: 24 Year
  Sex: Male

DRUGS (6)
  1. INVEGA [Suspect]
     Active Substance: PALIPERIDONE
     Indication: BIPOLAR DISORDER
     Route: 048
     Dates: start: 2009, end: 2014
  2. INVEGA [Suspect]
     Active Substance: PALIPERIDONE
     Indication: AUTISM SPECTRUM DISORDER
     Route: 048
     Dates: start: 2009, end: 2014
  3. RISPERDAL [Suspect]
     Active Substance: RISPERIDONE
     Indication: AUTISM SPECTRUM DISORDER
     Route: 048
     Dates: start: 2008, end: 201406
  4. ABILIFY [Suspect]
     Active Substance: ARIPIPRAZOLE
     Indication: PRODUCT USED FOR UNKNOWN INDICATION
     Route: 048
  5. RISPERDAL [Suspect]
     Active Substance: RISPERIDONE
     Indication: BIPOLAR DISORDER
     Route: 048
     Dates: start: 2008, end: 201406
  6. INVEGA [Suspect]
     Active Substance: PALIPERIDONE
     Indication: AFFECTIVE DISORDER
     Route: 048
     Dates: start: 2009, end: 2014

REACTIONS (5)
  - Fatigue [Unknown]
  - Asthenopia [Unknown]
  - Abnormal weight gain [Unknown]
  - Gynaecomastia [Unknown]
  - Somnolence [Unknown]

NARRATIVE: CASE EVENT DATE: 2010
